FAERS Safety Report 8810170 (Version 1)
Quarter: 2012Q4

REPORT INFORMATION
  Report Type: Report from Study
  Country: GB (occurrence: GB)
  Receive Date: 20120926
  Receipt Date: 20120926
  Transmission Date: 20130627
  Serious: Yes (Hospitalization)
  Sender: FDA-Public Use
  Company Number: GB-ROCHE-1129533

PATIENT
  Age: 58 Year
  Sex: Male
  Weight: 95 kg

DRUGS (6)
  1. BEVACIZUMAB [Suspect]
     Indication: GASTRIC CANCER
     Dosage: last dose prior to SAE 10 Apr 2012, actual dose 712 mg
     Route: 042
     Dates: start: 20120224
  2. EPIRUBICIN [Suspect]
     Indication: GASTRIC CANCER
     Dosage: Last dose prior to sae was 10Apr 2012, actual dose 100mg
     Route: 042
     Dates: start: 20120224
  3. CISPLATIN [Suspect]
     Indication: GASTRIC CANCER
     Dosage: last dose prior to sae was 10/apr/2012, actual dose 120mg
     Route: 042
     Dates: start: 20120224
  4. CAPECITABINE [Suspect]
     Indication: GASTRIC CANCER
     Dosage: last dose prior to sae was 1/may/2012 actual dose 2500mg
     Route: 065
     Dates: start: 20120224
  5. MIRTAZAPINE [Concomitant]
  6. OMEPRAZOLE [Concomitant]
     Route: 065
     Dates: start: 201203, end: 20120614

REACTIONS (1)
  - Anastomotic leak [Recovered/Resolved]
